FAERS Safety Report 18013677 (Version 1)
Quarter: 2020Q3

REPORT INFORMATION
  Report Type: Spontaneous
  Country: US (occurrence: US)
  Receive Date: 20200711
  Receipt Date: 20200711
  Transmission Date: 20201103
  Serious: Yes (Other)
  Sender: FDA-Public Use
  Company Number: None

PATIENT
  Age: 81 Year
  Sex: Male
  Weight: 74.25 kg

DRUGS (5)
  1. SALONPAS LIDOCAINE PAIN RELIEVING [Suspect]
     Active Substance: LIDOCAINE
  2. CLARITIN [Concomitant]
     Active Substance: LORATADINE
  3. HYDROCODONE?CHLORPHENIRAMINE ER SUSPENSION [Suspect]
     Active Substance: CHLORPHENIRAMINE HYDROCHLORIDE\HYDROCODONE
     Indication: COUGH
     Route: 048
     Dates: start: 20110320, end: 20200711
  4. DOXYCYCLINE HYCLATE. [Concomitant]
     Active Substance: DOXYCYCLINE HYCLATE
  5. ROSUVATATIN [Concomitant]

REACTIONS (2)
  - Hypersensitivity [None]
  - Documented hypersensitivity to administered product [None]

NARRATIVE: CASE EVENT DATE: 20200711
